FAERS Safety Report 8074672-7 (Version None)
Quarter: 2012Q1

REPORT INFORMATION
  Report Type: 
  Country: None (occurrence: None)
  Receive Date: 20120126
  Receipt Date: 20120124
  Transmission Date: 20120608
  Serious: Yes (Other)
  Sender: FDA-Public Use
  Company Number: FR-PFIZER INC-2011303821

PATIENT
  Age: 50 Year
  Sex: Male
  Weight: 69 kg

DRUGS (1)
  1. DOSTINEX [Suspect]
     Indication: PROLACTIN-PRODUCING PITUITARY TUMOUR
     Dosage: 0.5 DF, WEEKLY
     Dates: start: 20060801

REACTIONS (3)
  - DYSPNOEA [None]
  - ASTHENIA [None]
  - PROSTATECTOMY [None]
